FAERS Safety Report 9539101 (Version 1)
Quarter: 2013Q3

REPORT INFORMATION
  Report Type: Spontaneous
  Country: US (occurrence: US)
  Receive Date: 20130920
  Receipt Date: 20130920
  Transmission Date: 20140515
  Serious: Yes (Hospitalization)
  Sender: FDA-Public Use
  Company Number: US-BAYER-2013-113276

PATIENT
  Age: 40 Year
  Sex: Female

DRUGS (4)
  1. YAZ [Suspect]
  2. AMITRIPTYLINE [Concomitant]
     Dosage: 20 MG, AT NIGHT
     Route: 048
  3. AMITIZA [Concomitant]
  4. ELAVIL [Concomitant]

REACTIONS (2)
  - Deep vein thrombosis [None]
  - Pulmonary embolism [None]
